FAERS Safety Report 12190196 (Version 2)
Quarter: 2016Q2

REPORT INFORMATION
  Report Type: Spontaneous
  Country: BR (occurrence: BR)
  Receive Date: 20160318
  Receipt Date: 20160423
  Transmission Date: 20160815
  Serious: Yes (Hospitalization, Other)
  Sender: FDA-Public Use
  Company Number: BR-BRISTOL-MYERS SQUIBB COMPANY-BMS-2016-018866

PATIENT
  Sex: Female

DRUGS (2)
  1. METFORMIN HYDROCHLORIDE. [Suspect]
     Active Substance: METFORMIN HYDROCHLORIDE
     Indication: DIABETES MELLITUS
     Dosage: 1 DF, BID
     Route: 048
     Dates: start: 2008
  2. PURAN [Concomitant]
     Active Substance: LEVOTHYROXINE SODIUM
     Indication: HYPOTHYROIDISM
     Route: 065

REACTIONS (6)
  - Cerebrovascular accident [Unknown]
  - Hypertension [Unknown]
  - Atrophy [Unknown]
  - Hypercholesterolaemia [Unknown]
  - Inappropriate schedule of drug administration [Unknown]
  - Depression [Unknown]

NARRATIVE: CASE EVENT DATE: 2011
